FAERS Safety Report 11628622 (Version 2)
Quarter: 2015Q4

REPORT INFORMATION
  Report Type: Report from Study
  Country: DE (occurrence: DE)
  Receive Date: 20151014
  Receipt Date: 20151105
  Transmission Date: 20160304
  Serious: Yes (Hospitalization)
  Sender: FDA-Public Use
  Company Number: DE-BIOGENIDEC-2015BI138516

PATIENT
  Age: 56 Year
  Sex: Female

DRUGS (1)
  1. PLEGRIDY [Suspect]
     Active Substance: PEGINTERFERON BETA-1A
     Indication: MULTIPLE SCLEROSIS
     Route: 058
     Dates: start: 20141106

REACTIONS (6)
  - Fall [Recovered/Resolved]
  - Patella fracture [Recovered/Resolved]
  - Accident [Recovered/Resolved]
  - Gait disturbance [Not Recovered/Not Resolved]
  - Multiple sclerosis relapse [Not Recovered/Not Resolved]
  - Injection site swelling [Not Recovered/Not Resolved]

NARRATIVE: CASE EVENT DATE: 201503
